FAERS Safety Report 8069833-7 (Version None)
Quarter: 2012Q1

REPORT INFORMATION
  Report Type: 
  Country: None (occurrence: None)
  Receive Date: 20120125
  Receipt Date: 20120125
  Transmission Date: 20120608
  Serious: Yes (Other)
  Sender: FDA-Public Use
  Company Number: None

PATIENT
  Age: 43 Year
  Sex: Female
  Weight: 56.699 kg

DRUGS (2)
  1. MICONAZOLE [Suspect]
     Indication: VULVOVAGINAL DISCOMFORT
     Dosage: 1200 MG
     Route: 067
     Dates: start: 20120123, end: 20120124
  2. MICONAZOLE [Suspect]
     Indication: VULVOVAGINAL PRURITUS
     Dosage: 1200 MG
     Route: 067
     Dates: start: 20120123, end: 20120124

REACTIONS (3)
  - APPLICATION SITE PRURITUS [None]
  - APPLICATION SITE SWELLING [None]
  - APPLICATION SITE PAIN [None]
